FAERS Safety Report 6307512-4 (Version None)
Quarter: 2009Q3

REPORT INFORMATION
  Report Type: 
  Country: None (occurrence: None)
  Receive Date: 20090813
  Receipt Date: 20071005
  Transmission Date: 20100115
  Serious: Yes (Other)
  Sender: FDA-Public Use
  Company Number: US-ASTRAZENECA-2007UW10867

PATIENT
  Age: 41 Year
  Sex: Male
  Weight: 127 kg

DRUGS (5)
  1. SEROQUEL [Suspect]
     Dosage: 25-500 MG
     Route: 048
     Dates: start: 20000107, end: 20071030
  2. ATENOLOL [Concomitant]
     Route: 048
     Dates: start: 20050406
  3. LISINOPRIL [Concomitant]
     Route: 048
     Dates: start: 20050406
  4. TOPOROL [Concomitant]
     Route: 048
     Dates: start: 20050407
  5. ALLOPURINOL [Concomitant]
     Dates: start: 20050406

REACTIONS (3)
  - DIABETES MELLITUS [None]
  - DIABETIC NEUROPATHY [None]
  - TYPE 2 DIABETES MELLITUS [None]
